FAERS Safety Report 14028140 (Version 2)
Quarter: 2017Q4

REPORT INFORMATION
  Report Type: Spontaneous
  Country: CA (occurrence: CA)
  Receive Date: 20171002
  Receipt Date: 20171019
  Transmission Date: 20180321
  Serious: Yes (Hospitalization, Other)
  Sender: FDA-Public Use
  Company Number: CA-ASTRAZENECA-2017SE99107

PATIENT
  Age: 503 Month
  Sex: Female

DRUGS (5)
  1. SYMBICORT [Suspect]
     Active Substance: BUDESONIDE\FORMOTEROL FUMARATE DIHYDRATE
     Indication: BRONCHITIS
     Dosage: 2 INHALATIONS , UNKNOWN UNKNOWN
     Route: 055
     Dates: start: 20170913, end: 20170913
  2. SYMBICORT [Suspect]
     Active Substance: BUDESONIDE\FORMOTEROL FUMARATE DIHYDRATE
     Indication: BRONCHITIS
     Dosage: 3 INHALATIONS, UNKNOWN UNKNOWN
     Route: 055
     Dates: start: 20170914, end: 20170914
  3. SYMBICORT [Suspect]
     Active Substance: BUDESONIDE\FORMOTEROL FUMARATE DIHYDRATE
     Indication: ASTHMA
     Dosage: 3 INHALATIONS, UNKNOWN UNKNOWN
     Route: 055
     Dates: start: 20170914, end: 20170914
  4. SYMBICORT [Suspect]
     Active Substance: BUDESONIDE\FORMOTEROL FUMARATE DIHYDRATE
     Indication: ASTHMA
     Dosage: 2 INHALATIONS , UNKNOWN UNKNOWN
     Route: 055
     Dates: start: 20170913, end: 20170913
  5. BIAXIN [Concomitant]
     Active Substance: CLARITHROMYCIN

REACTIONS (6)
  - Hypokinesia [Unknown]
  - Hepatic enzyme increased [Unknown]
  - Confusional state [Recovering/Resolving]
  - Adverse drug reaction [Unknown]
  - Insomnia [Recovering/Resolving]
  - Drug ineffective [Unknown]

NARRATIVE: CASE EVENT DATE: 201709
